FAERS Safety Report 6594490-6 (Version None)
Quarter: 2010Q1

REPORT INFORMATION
  Report Type: 
  Country: None (occurrence: None)
  Receive Date: 20100222
  Receipt Date: 20100217
  Transmission Date: 20100710
  Serious: Yes (Death)
  Sender: FDA-Public Use
  Company Number: DE-BAYER-201016108GPV

PATIENT
  Age: 73 Year
  Sex: Male

DRUGS (8)
  1. AVELOX (KOHLPHARMA) MOXIFLOXACIN RE-IMPORT [Suspect]
     Indication: DRUG USE FOR UNKNOWN INDICATION
     Dosage: TOTAL DAILY DOSE: 400 MG  UNIT DOSE: 400 MG
     Route: 048
     Dates: start: 20091224, end: 20091225
  2. FURO CT [Concomitant]
  3. NOVALGIN [Concomitant]
  4. APONAL [Concomitant]
  5. PANTOPRAZOL TAD [Concomitant]
  6. MOLSIHEXAL RETARD [Concomitant]
  7. EZETROL [Concomitant]
  8. FOSTER [Concomitant]
     Route: 055

REACTIONS (1)
  - DEATH [None]
